FAERS Safety Report 13737532 (Version 1)
Quarter: 2017Q3

REPORT INFORMATION
  Report Type: Spontaneous
  Country: CN (occurrence: CN)
  Receive Date: 20170710
  Receipt Date: 20170710
  Transmission Date: 20171127
  Serious: Yes (Disabling, Other)
  Sender: FDA-Public Use
  Company Number: CN-PFIZER INC-2017295539

PATIENT
  Age: 89 Year
  Sex: Female
  Weight: 52 kg

DRUGS (3)
  1. CELEBREX [Suspect]
     Active Substance: CELECOXIB
     Indication: PAIN
     Dosage: 0.2 G, 2X/DAY
     Route: 048
     Dates: start: 20170425, end: 20170429
  2. CALCITONIN SALMON. [Suspect]
     Active Substance: CALCITONIN SALMON
     Indication: OSTEOPOROSIS
     Dosage: 50 IU, 1X/DAY
     Route: 030
     Dates: start: 20170429, end: 20170505
  3. ALLOPURINOL. [Suspect]
     Active Substance: ALLOPURINOL
     Indication: GOUT
     Dosage: 0.1 G, 2X/DAY
     Route: 048
     Dates: start: 20170320, end: 20170507

REACTIONS (6)
  - Immune system disorder [Recovered/Resolved with Sequelae]
  - Erythema multiforme [Recovered/Resolved with Sequelae]
  - Liver injury [Recovered/Resolved with Sequelae]
  - Renal failure [Recovered/Resolved with Sequelae]
  - Sepsis [Recovered/Resolved with Sequelae]
  - Lung infection [Recovered/Resolved with Sequelae]

NARRATIVE: CASE EVENT DATE: 2017
